FAERS Safety Report 5932313-6 (Version None)
Quarter: 2008Q4

REPORT INFORMATION
  Report Type: 
  Country: None (occurrence: None)
  Receive Date: 20081028
  Receipt Date: 20081016
  Transmission Date: 20090506
  Serious: Yes (Death)
  Sender: FDA-Public Use
  Company Number: DE-ROCHE-592271

PATIENT
  Sex: Female
  Weight: 56.4 kg

DRUGS (1)
  1. METHOXY POLYETHYLENE GLYCOL-EPOETIN BETA [Suspect]
     Indication: HYPERTENSIVE NEPHROPATHY
     Route: 065

REACTIONS (1)
  - AORTIC VALVE STENOSIS [None]
